FAERS Safety Report 8381227 (Version 2)
Quarter: 2013Q1

REPORT INFORMATION
  Report Type: Report from Study
  Country: US (occurrence: US)
  Receive Date: 20120129
  Receipt Date: 20130131
  Transmission Date: 20140127
  Serious: No
  Sender: FDA-Public Use
  Company Number: US-ABBOTT-11P-163-0855947-00

PATIENT
  Age: 20 None
  Sex: Female

DRUGS (9)
  1. HUMIRA [Suspect]
     Indication: RHEUMATOID ARTHRITIS
     Route: 058
     Dates: start: 20110818, end: 201201
  2. HUMIRA [Suspect]
     Indication: SJOGREN^S SYNDROME
     Dates: start: 201201, end: 201202
  3. HUMIRA [Suspect]
     Dates: start: 201203
  4. METHOTREXATE [Suspect]
     Indication: RHEUMATOID ARTHRITIS
     Dosage: 3 PILLS WEEKLY
     Dates: end: 201202
  5. METHOTREXATE [Suspect]
     Indication: SJOGREN^S SYNDROME
  6. FOLIC ACID [Concomitant]
     Indication: PRODUCT USED FOR UNKNOWN INDICATION
     Dosage: DAILY
  7. EFFEXOR [Concomitant]
     Indication: PRODUCT USED FOR UNKNOWN INDICATION
     Dosage: DAILY
  8. APRI [Concomitant]
     Indication: CONTRACEPTION
     Dosage: DAILY
  9. VYVANSE [Concomitant]
     Indication: ATTENTION DEFICIT/HYPERACTIVITY DISORDER
     Dosage: PRESCRIBED 1 20MG TABLET, BYT TAKES 5 TIMES A WEEK

REACTIONS (13)
  - Hypersensitivity [Recovering/Resolving]
  - Injection site bruising [Unknown]
  - Injection site erythema [Unknown]
  - Injection site swelling [Unknown]
  - Off label use [Not Recovered/Not Resolved]
  - Injection site urticaria [Not Recovered/Not Resolved]
  - Injection site urticaria [Not Recovered/Not Resolved]
  - Injection site bruising [Not Recovered/Not Resolved]
  - Injection site swelling [Not Recovered/Not Resolved]
  - Drug ineffective [Recovered/Resolved]
  - Sneezing [Recovered/Resolved]
  - Lacrimation increased [Recovered/Resolved]
  - Alopecia [Recovered/Resolved]
